FAERS Safety Report 8966926 (Version 2)
Quarter: 2013Q1

REPORT INFORMATION
  Report Type: Spontaneous
  Country: FR (occurrence: FR)
  Receive Date: 20121214
  Receipt Date: 20130123
  Transmission Date: 20140127
  Serious: Yes (Other)
  Sender: FDA-Public Use
  Company Number: FR-ABBOTT-12P-056-1019724-00

PATIENT
  Age: 43 Year
  Sex: Male

DRUGS (6)
  1. DEPAKINE CHRONO [Suspect]
     Indication: CONVULSION
     Dosage: 3.5G DAILY
     Route: 048
     Dates: start: 201206
  2. SEVOFLURANE [Suspect]
     Indication: PRODUCT USED FOR UNKNOWN INDICATION
     Route: 042
     Dates: start: 20121018, end: 20121018
  3. PROPOFOL [Suspect]
     Indication: ANAESTHESIA
     Route: 042
     Dates: start: 20121018, end: 20121018
  4. SUFENTANIL [Suspect]
     Indication: ANAESTHESIA
     Route: 042
     Dates: start: 20121018, end: 20121018
  5. CISATRACURIUM [Suspect]
     Indication: ANAESTHESIA
     Route: 042
     Dates: start: 20121018, end: 20121018
  6. CEFAZOLIN [Suspect]
     Indication: ANAESTHESIA
     Route: 042
     Dates: start: 20121018, end: 20121018

REACTIONS (1)
  - Lactic acidosis [Unknown]
